FAERS Safety Report 26153495 (Version 1)
Quarter: 2025Q4

REPORT INFORMATION
  Report Type: Report from Study
  Country: US (occurrence: US)
  Receive Date: 20251214
  Receipt Date: 20251214
  Transmission Date: 20260117
  Serious: Yes (Hospitalization)
  Sender: ABBVIE
  Company Number: US-ABBVIE-6416154

PATIENT
  Age: 77 Year
  Sex: Male

DRUGS (5)
  1. SKYRIZI [Suspect]
     Active Substance: RISANKIZUMAB-RZAA
     Indication: Crohn^s disease
     Dosage: TIME INTERVAL: TOTAL: STRENGTH- 360MG/2.4ML?WEEK-12
     Route: 058
     Dates: start: 202508, end: 202508
  2. SKYRIZI [Suspect]
     Active Substance: RISANKIZUMAB-RZAA
     Dosage: STRENGTH- 360MG/2.4ML
     Route: 058
     Dates: start: 202510
  3. SKYRIZI [Suspect]
     Active Substance: RISANKIZUMAB-RZAA
     Indication: Crohn^s disease
     Dosage: TIME INTERVAL: TOTAL: WEEK-0?STRENGTH- 600MG
     Route: 042
     Dates: start: 202505, end: 202505
  4. SKYRIZI [Suspect]
     Active Substance: RISANKIZUMAB-RZAA
     Indication: Crohn^s disease
     Dosage: TIME INTERVAL: TOTAL: WEEK-4?STRENGTH- 600MG
     Route: 042
     Dates: start: 202506, end: 202506
  5. SKYRIZI [Suspect]
     Active Substance: RISANKIZUMAB-RZAA
     Indication: Crohn^s disease
     Dosage: TIME INTERVAL: TOTAL: WEEK-8?STRENGTH- 600MG
     Route: 042
     Dates: start: 202507, end: 202507

REACTIONS (14)
  - Chronic obstructive pulmonary disease [Recovering/Resolving]
  - Eye infection [Not Recovered/Not Resolved]
  - Rhinorrhoea [Unknown]
  - Oropharyngeal pain [Unknown]
  - Respiratory tract congestion [Unknown]
  - Hot flush [Unknown]
  - Pneumonia [Recovering/Resolving]
  - Fatigue [Unknown]
  - Abdominal pain [Recovered/Resolved]
  - Frequent bowel movements [Unknown]
  - Flatulence [Unknown]
  - Abdominal distension [Unknown]
  - Diarrhoea [Recovered/Resolved]
  - Faeces soft [Unknown]

NARRATIVE: CASE EVENT DATE: 20250101
